FAERS Safety Report 9996661 (Version 1)
Quarter: 2014Q1

REPORT INFORMATION
  Report Type: Spontaneous
  Country: GB (occurrence: GB)
  Receive Date: 20140311
  Receipt Date: 20140311
  Transmission Date: 20141002
  Serious: Yes (Hospitalization, Other)
  Sender: FDA-Public Use
  Company Number: GB-ACTAVIS-2014-04040

PATIENT
  Age: 4 Year
  Sex: Female
  Weight: 20 kg

DRUGS (3)
  1. ACYCLOVIR (UNKNOWN) [Suspect]
     Indication: VARICELLA
     Dosage: 400 MG UNK.PLANNED 5 DAY COURSE
     Route: 042
     Dates: start: 20140205, end: 20140209
  2. FOLIC ACID [Concomitant]
     Indication: PRODUCT USED FOR UNKNOWN INDICATION
     Dosage: UNK
     Route: 065
  3. METHOTREXATE [Concomitant]
     Indication: JUVENILE IDIOPATHIC ARTHRITIS
     Dosage: 10 MG 1/WEEK.FOR MONTHS (START DATE UNKNOWN). DELAYED BY THIS EPISODE.
     Route: 030

REACTIONS (2)
  - Renal failure acute [Recovered/Resolved]
  - Oedema [Recovered/Resolved]
